FAERS Safety Report 4285754-X (Version None)
Quarter: 2004Q1

REPORT INFORMATION
  Report Type: 
  Country: None (occurrence: None)
  Receive Date: 20040203
  Receipt Date: 20040123
  Transmission Date: 20041129
  Serious: Yes (Hospitalization)
  Sender: FDA-Public Use
  Company Number: FR-JNJFOC-20040104717

PATIENT
  Age: 23 Year
  Sex: Female

DRUGS (2)
  1. DAKTARIN (MICONAZOLE) TABLETS [Suspect]
     Dosage: 125 MG, 1 IN 1 DAY, ORAL
     Route: 048
     Dates: start: 20010417, end: 20010421
  2. GYNO-PEVARYL (ECONAZOLE NITRATE) OVULE [Suspect]
     Dosage: 150 MG, VAGINAL
     Route: 067
     Dates: start: 20010417, end: 20010421

REACTIONS (3)
  - PRURITUS [None]
  - RASH [None]
  - URTICARIA GENERALISED [None]
